FAERS Safety Report 18047806 (Version 1)
Quarter: 2020Q3

REPORT INFORMATION
  Report Type: Spontaneous
  Country: US (occurrence: US)
  Receive Date: 20200720
  Receipt Date: 20200720
  Transmission Date: 20201103
  Serious: Yes (Life-Threatening)
  Sender: FDA-Public Use
  Company Number: None

PATIENT
  Age: 75 Year
  Sex: Female
  Weight: 73.2 kg

DRUGS (7)
  1. ROCURONIUM 50 MG IV [Concomitant]
     Dates: start: 20200715, end: 20200715
  2. SUCCINYLCHOLINE 100 MG IV [Concomitant]
     Dates: start: 20200715, end: 20200715
  3. REMDESIVIR. [Suspect]
     Active Substance: REMDESIVIR
     Indication: COVID-19
     Route: 041
     Dates: start: 20200711, end: 20200715
  4. MIDAZOLAM 2 MG IV [Concomitant]
     Dates: start: 20200715
  5. FAMOTIDINE 20 MG PO [Concomitant]
     Dates: start: 20200710
  6. DEXAMETHASONE 6 MG PO [Concomitant]
     Dates: start: 20200710
  7. PROPOFOL. [Concomitant]
     Active Substance: PROPOFOL
     Dates: start: 20200715

REACTIONS (1)
  - Acute myocardial infarction [None]

NARRATIVE: CASE EVENT DATE: 20200715
